FAERS Safety Report 6601264-6 (Version None)
Quarter: 2010Q1

REPORT INFORMATION
  Report Type: 
  Country: None (occurrence: None)
  Receive Date: 20100224
  Receipt Date: 20100224
  Transmission Date: 20100710
  Serious: Yes (Life-Threatening)
  Sender: FDA-Public Use
  Company Number: None

PATIENT
  Age: 53 Year
  Sex: Male
  Weight: 91.9 kg

DRUGS (1)
  1. BACTRIM [Suspect]
     Indication: PROPHYLAXIS
     Dosage: UNK UNK ORAL 047
     Route: 048

REACTIONS (5)
  - COAGULOPATHY [None]
  - JAUNDICE [None]
  - LIVER TRANSPLANT [None]
  - MENTAL STATUS CHANGES [None]
  - NAUSEA [None]
